FAERS Safety Report 6357375-6 (Version None)
Quarter: 2009Q3

REPORT INFORMATION
  Report Type: 
  Country: None (occurrence: None)
  Receive Date: 20090916
  Receipt Date: 20090904
  Transmission Date: 20100115
  Serious: Yes (Hospitalization)
  Sender: FDA-Public Use
  Company Number: US-CELGENEUS-163-21880-09090432

PATIENT
  Sex: Male
  Weight: 82.4 kg

DRUGS (4)
  1. REVLIMID [Suspect]
     Route: 048
     Dates: start: 20090717, end: 20090819
  2. BORTEZOMIB [Suspect]
     Route: 051
     Dates: start: 20090717, end: 20090817
  3. DEXAMETHASONE [Suspect]
     Route: 065
     Dates: start: 20090717, end: 20090818
  4. ASPIRIN [Concomitant]
     Indication: DRUG USE FOR UNKNOWN INDICATION
     Route: 065

REACTIONS (1)
  - ILEUS [None]
